FAERS Safety Report 8594462-6 (Version None)
Quarter: 2012Q3

REPORT INFORMATION
  Report Type: 
  Country: None (occurrence: None)
  Receive Date: 20120815
  Receipt Date: 20120807
  Transmission Date: 20120928
  Serious: Yes (Other)
  Sender: FDA-Public Use
  Company Number: US-009507513-2011SP029794

PATIENT

DRUGS (3)
  1. REBETOL [Suspect]
     Indication: HEPATITIS C
     Dosage: UNK
     Route: 048
     Dates: start: 20110408, end: 20120406
  2. VICTRELIS [Suspect]
     Indication: HEPATITIS C
     Dosage: UNK
     Route: 048
     Dates: start: 20110901, end: 20120115
  3. PEG-INTRON [Suspect]
     Indication: HEPATITIS C
     Dosage: UNK
     Route: 058
     Dates: start: 20110408, end: 20120406

REACTIONS (10)
  - INTRAOCULAR PRESSURE INCREASED [None]
  - TONGUE INJURY [None]
  - GLOSSODYNIA [None]
  - WEIGHT DECREASED [None]
  - SUICIDAL IDEATION [None]
  - TONGUE DISCOLOURATION [None]
  - DRY MOUTH [None]
  - OROPHARYNGEAL PAIN [None]
  - HEPATITIS VIRAL [None]
  - DYSGEUSIA [None]
